FAERS Safety Report 4632633-1 (Version None)
Quarter: 2005Q2

REPORT INFORMATION
  Report Type: 
  Country: None (occurrence: None)
  Receive Date: 20050331
  Receipt Date: 20040827
  Transmission Date: 20051028
  Serious: Yes (Other)
  Sender: FDA-Public Use
  Company Number: 200414230BCC

PATIENT
  Age: 87 Year
  Sex: Female
  Weight: 39.4629 kg

DRUGS (2)
  1. ALEVE [Suspect]
     Indication: BACK PAIN
     Dosage: 220 MG, ONCE, ORAL
     Route: 048
     Dates: start: 20040826
  2. FOSAMAX [Concomitant]

REACTIONS (1)
  - BLOOD URINE PRESENT [None]
